FAERS Safety Report 25124589 (Version 1)
Quarter: 2025Q1

REPORT INFORMATION
  Report Type: Spontaneous
  Country: US (occurrence: US)
  Receive Date: 20250326
  Receipt Date: 20250326
  Transmission Date: 20250409
  Serious: Yes (Life-Threatening, Other)
  Sender: PFIZER
  Company Number: US-PFIZER INC-PV202500034845

PATIENT
  Age: 44 Year
  Sex: Male

DRUGS (5)
  1. DOFETILIDE [Suspect]
     Active Substance: DOFETILIDE
     Indication: Supraventricular tachycardia
  2. DOFETILIDE [Suspect]
     Active Substance: DOFETILIDE
     Indication: Cardiac failure
  3. DOFETILIDE [Suspect]
     Active Substance: DOFETILIDE
     Indication: Tachycardia
  4. DOFETILIDE [Suspect]
     Active Substance: DOFETILIDE
     Indication: Atrial flutter
  5. DOFETILIDE [Suspect]
     Active Substance: DOFETILIDE
     Indication: Atrial tachycardia

REACTIONS (3)
  - Electrocardiogram QT prolonged [Unknown]
  - Torsade de pointes [Unknown]
  - Bradycardia [Unknown]
